FAERS Safety Report 6605183-0 (Version None)
Quarter: 2010Q1

REPORT INFORMATION
  Report Type: 
  Country: None (occurrence: None)
  Receive Date: 20100226
  Receipt Date: 20080418
  Transmission Date: 20100710
  Serious: Yes (Other)
  Sender: FDA-Public Use
  Company Number: GB-PFIZER INC-2008016070

PATIENT
  Age: 69 Year
  Sex: Female
  Weight: 74 kg

DRUGS (11)
  1. AROMASIN [Suspect]
     Indication: BREAST CANCER
     Route: 048
     Dates: start: 20080207
  2. METFORMIN HYDROCHLORIDE [Concomitant]
     Indication: TYPE 2 DIABETES MELLITUS
     Route: 048
     Dates: start: 20020902
  3. INDAPAMIDE [Concomitant]
     Indication: HYPERTENSION
     Dosage: 2.5 MG, UNK
     Route: 048
     Dates: start: 20030527
  4. GLICLAZIDE [Concomitant]
     Indication: TYPE 2 DIABETES MELLITUS
     Dosage: 80 MG, 1X/DAY
     Route: 048
     Dates: start: 20040824
  5. SIMVASTATIN [Concomitant]
     Indication: TYPE 2 DIABETES MELLITUS
     Route: 048
     Dates: start: 20070319
  6. SIMVASTATIN [Concomitant]
     Indication: BLOOD CHOLESTEROL INCREASED
  7. ATENOLOL [Concomitant]
     Route: 048
     Dates: start: 20070821
  8. ACETYLSALICYLIC ACID [Concomitant]
     Dosage: 75 MG, 1X/DAY
     Route: 048
  9. FUROSEMIDE [Concomitant]
     Indication: JOINT SWELLING
     Dosage: 40 MG, 1X/DAY
     Route: 048
     Dates: start: 20070918
  10. PERINDOPRIL [Concomitant]
     Indication: HYPERTENSION
     Dosage: 4 MG, 1X/DAY
     Route: 048
     Dates: start: 20041130
  11. AMLODIPINE [Concomitant]
     Indication: HYPERTENSION
     Dosage: 5 MG, 1X/DAY
     Route: 048
     Dates: start: 20080205

REACTIONS (10)
  - DRY SKIN [None]
  - EYE PAIN [None]
  - HAIR DISORDER [None]
  - HAIR TEXTURE ABNORMAL [None]
  - NAUSEA [None]
  - OCULAR HYPERAEMIA [None]
  - ONYCHOCLASIS [None]
  - PRURITUS [None]
  - SKIN EXFOLIATION [None]
  - SKIN HAEMORRHAGE [None]
